FAERS Safety Report 12932320 (Version 5)
Quarter: 2017Q2

REPORT INFORMATION
  Report Type: Report from Study
  Country: GB (occurrence: GB)
  Receive Date: 20161111
  Receipt Date: 20170609
  Transmission Date: 20170830
  Serious: Yes (Hospitalization, Other)
  Sender: FDA-Public Use
  Company Number: GB-BRISTOL-MYERS SQUIBB COMPANY-BMS-2016-070073

PATIENT
  Sex: Female

DRUGS (1)
  1. ABATACEPT [Suspect]
     Active Substance: ABATACEPT
     Indication: RHEUMATOID ARTHRITIS
     Dosage: 125 MG, QWK
     Route: 058
     Dates: start: 20160616

REACTIONS (7)
  - Lower respiratory tract infection [Unknown]
  - Product quality issue [Unknown]
  - Cough [Unknown]
  - Insomnia [Unknown]
  - Fatigue [Unknown]
  - Eye operation [Unknown]
  - Pneumonitis [Unknown]
